FAERS Safety Report 5774363-9 (Version None)
Quarter: 2008Q2

REPORT INFORMATION
  Report Type: 
  Country: None (occurrence: None)
  Receive Date: 20080616
  Receipt Date: 20080604
  Transmission Date: 20081010
  Serious: Yes (Other)
  Sender: FDA-Public Use
  Company Number: US-PFIZER INC-2007062528

PATIENT
  Sex: Female
  Weight: 79.4 kg

DRUGS (2)
  1. BEXTRA [Suspect]
     Indication: PAIN
  2. BEXTRA [Suspect]
     Indication: SURGERY

REACTIONS (5)
  - ANXIETY [None]
  - DEPRESSION [None]
  - DRUG HYPERSENSITIVITY [None]
  - MYOCARDIAL INFARCTION [None]
  - STEVENS-JOHNSON SYNDROME [None]
